FAERS Safety Report 8239049-X (Version None)
Quarter: 2012Q1

REPORT INFORMATION
  Report Type: 
  Country: None (occurrence: None)
  Receive Date: 20120327
  Receipt Date: 20120321
  Transmission Date: 20120608
  Serious: Yes (Hospitalization)
  Sender: FDA-Public Use
  Company Number: JP-MERCK-1203USA03085

PATIENT
  Age: 82 Year
  Sex: Male

DRUGS (4)
  1. AMARYL [Concomitant]
     Route: 065
     Dates: start: 20120213
  2. LANTUS [Concomitant]
     Route: 065
     Dates: end: 20120115
  3. LANTUS [Concomitant]
     Route: 065
     Dates: start: 20120116, end: 20120212
  4. JANUVIA [Suspect]
     Indication: TYPE 2 DIABETES MELLITUS
     Route: 048
     Dates: start: 20120116

REACTIONS (1)
  - HERNIA OBSTRUCTIVE [None]
